FAERS Safety Report 19910662 (Version 1)
Quarter: 2021Q4

REPORT INFORMATION
  Report Type: Other
  Country: US (occurrence: US)
  Receive Date: 20211004
  Receipt Date: 20211004
  Transmission Date: 20220303
  Serious: Yes (Other)
  Sender: FDA-Public Use
  Company Number: US-ROCHE-2920713

PATIENT
  Sex: Male

DRUGS (11)
  1. EVRYSDI [Suspect]
     Active Substance: RISDIPLAM
     Indication: Spinal muscular atrophy
     Dosage: TAKE 6.6 ML (5 MG) EVERY DAY.
     Route: 048
  2. EZETIMIBE [Concomitant]
     Active Substance: EZETIMIBE
     Route: 048
  3. FLUOXETINE [Concomitant]
     Active Substance: FLUOXETINE HYDROCHLORIDE
     Route: 048
  4. FORTEO [Concomitant]
     Active Substance: TERIPARATIDE
     Dosage: 20 MCG/DOSE?600 MCG/2.4ML
     Route: 058
  5. HYDROCORTISONE [Concomitant]
     Active Substance: HYDROCORTISONE
     Route: 061
  6. LEVOTHYROXINE [Concomitant]
     Active Substance: LEVOTHYROXINE
     Dosage: 175 MCG
     Route: 048
  7. REPATHA [Concomitant]
     Active Substance: EVOLOCUMAB
     Dosage: 420 MG/3.5ML
     Route: 058
  8. TADALAFIL [Concomitant]
     Active Substance: TADALAFIL
     Route: 048
  9. TESTOSTERONE ENANTHATE [Concomitant]
     Active Substance: TESTOSTERONE ENANTHATE
     Route: 030
  10. WARFARIN [Concomitant]
     Active Substance: WARFARIN
     Route: 048
  11. WARFARIN [Concomitant]
     Active Substance: WARFARIN
     Route: 048

REACTIONS (2)
  - Myocardial infarction [Unknown]
  - Diarrhoea [Unknown]
